FAERS Safety Report 7621659-1 (Version None)
Quarter: 2011Q3

REPORT INFORMATION
  Report Type: 
  Country: None (occurrence: None)
  Receive Date: 20110719
  Receipt Date: 20110706
  Transmission Date: 20111222
  Serious: Yes (Other)
  Sender: FDA-Public Use
  Company Number: US-CELGENEUS-163-21880-11070835

PATIENT
  Sex: Male
  Weight: 123 kg

DRUGS (2)
  1. REVLIMID [Suspect]
     Indication: MULTIPLE MYELOMA
     Dosage: 12.5 MILLIGRAM
     Route: 048
     Dates: start: 20110209
  2. DEXAMETHASONE [Concomitant]
     Route: 065

REACTIONS (1)
  - VISUAL IMPAIRMENT [None]
